FAERS Safety Report 9461458 (Version 1)
Quarter: 2013Q3

REPORT INFORMATION
  Report Type: Spontaneous
  Country: US (occurrence: US)
  Receive Date: 20130816
  Receipt Date: 20130816
  Transmission Date: 20140515
  Serious: Yes (Other)
  Sender: FDA-Public Use
  Company Number: PHEH2013US016774

PATIENT
  Sex: Female

DRUGS (10)
  1. TASIGNA [Suspect]
     Indication: CHRONIC MYELOID LEUKAEMIA
     Route: 048
  2. GLEEVEC [Suspect]
  3. LEVOTHYROXINE [Concomitant]
  4. LANOXIN [Concomitant]
  5. DIGOXIN [Concomitant]
  6. GLYBURIDE [Concomitant]
  7. MAGNESIUM [Concomitant]
  8. ASPIRIN [Concomitant]
  9. VIT B1 [Concomitant]
  10. VITAMIN C [Concomitant]

REACTIONS (1)
  - Diabetes mellitus [Unknown]
